FAERS Safety Report 5964659-X (Version None)
Quarter: 2008Q4

REPORT INFORMATION
  Report Type: 
  Country: None (occurrence: None)
  Receive Date: 20081119
  Receipt Date: 20080226
  Transmission Date: 20090506
  Serious: Yes (Death)
  Sender: FDA-Public Use
  Company Number: 2008S1003485

PATIENT
  Age: 59 Year
  Sex: Male

DRUGS (8)
  1. BLEOMYCIN SULFATE [Suspect]
     Indication: HODGKIN'S DISEASE MIXED CELLULARITY STAGE IV
  2. CHLORAMBUCIL [Suspect]
     Indication: HODGKIN'S DISEASE MIXED CELLULARITY STAGE IV
  3. VINBLASTINE SULFATE [Suspect]
     Indication: HODGKIN'S DISEASE MIXED CELLULARITY STAGE IV
  4. CARBAMAZEPINE [Suspect]
     Indication: HODGKIN'S DISEASE MIXED CELLULARITY STAGE IV
  5. PREDNISOLONE [Suspect]
     Indication: HODGKIN'S DISEASE MIXED CELLULARITY STAGE IV
  6. ADRIAMYCIN PFS [Suspect]
     Indication: HODGKIN'S DISEASE MIXED CELLULARITY STAGE IV
  7. VINCRISTINE [Suspect]
     Indication: HODGKIN'S DISEASE MIXED CELLULARITY STAGE IV
  8. ETOPOSIDE [Suspect]
     Indication: HODGKIN'S DISEASE MIXED CELLULARITY STAGE IV

REACTIONS (2)
  - PANCYTOPENIA [None]
  - RETINAL HAEMORRHAGE [None]
